FAERS Safety Report 8590259-1 (Version None)
Quarter: 2012Q3

REPORT INFORMATION
  Report Type: 
  Country: None (occurrence: None)
  Receive Date: 20120813
  Receipt Date: 20110330
  Transmission Date: 20120928
  Serious: Yes (Other)
  Sender: FDA-Public Use
  Company Number: US-GLAXOSMITHKLINE-A0921713A

PATIENT
  Age: 55 Year
  Sex: Female
  Weight: 77 kg

DRUGS (7)
  1. POTASSIUM CHLORIDE [Suspect]
  2. OXYGEN [Concomitant]
  3. AMOXICILLIN [Suspect]
     Indication: PRODUCT USED FOR UNKNOWN INDICATION
     Route: 065
  4. TRACLEER [Concomitant]
     Indication: PRODUCT USED FOR UNKNOWN INDICATION
     Dosage: 125MG TWICE PER DAY
     Route: 065
  5. LASIX [Concomitant]
  6. FLOLAN [Suspect]
     Indication: PULMONARY ARTERIAL HYPERTENSION
     Dosage: 20NGKM UNKNOWN
     Route: 065
     Dates: start: 20110126
  7. COUMADIN [Concomitant]

REACTIONS (6)
  - CELLULITIS [None]
  - HYPERSENSITIVITY [None]
  - EAR INFECTION [None]
  - RASH [None]
  - SKIN DISCOLOURATION [None]
  - PAIN IN EXTREMITY [None]
